FAERS Safety Report 25612775 (Version 1)
Quarter: 2025Q3

REPORT INFORMATION
  Report Type: Spontaneous
  Country: EU (occurrence: EU)
  Receive Date: 20250728
  Receipt Date: 20250728
  Transmission Date: 20251021
  Serious: Yes (Death, Life-Threatening, Other)
  Sender: ORGANON
  Company Number: EU-ARENA-2025-00112

PATIENT
  Age: 56 Year
  Sex: Male

DRUGS (3)
  1. MIRTAZAPINE [Suspect]
     Active Substance: MIRTAZAPINE
     Indication: Frontotemporal dementia
  2. PIPAMPERONE [Concomitant]
     Active Substance: PIPAMPERONE
     Indication: Frontotemporal dementia
  3. ZOPICLONE [Concomitant]
     Active Substance: ZOPICLONE
     Indication: Frontotemporal dementia

REACTIONS (4)
  - Delirium [Fatal]
  - Agitation [Not Recovered/Not Resolved]
  - Aggression [Not Recovered/Not Resolved]
  - Product use in unapproved indication [Unknown]
